FAERS Safety Report 22105466 (Version 2)
Quarter: 2023Q1

REPORT INFORMATION
  Report Type: Spontaneous
  Country: US (occurrence: US)
  Receive Date: 20230317
  Receipt Date: 20230331
  Transmission Date: 20230418
  Serious: Yes (Hospitalization, Other)
  Sender: FDA-Public Use
  Company Number: US-Indoco-000394

PATIENT
  Age: 79 Year
  Sex: Male

DRUGS (1)
  1. APIXABAN [Suspect]
     Active Substance: APIXABAN
     Indication: Anticoagulant therapy

REACTIONS (6)
  - Spontaneous hyphaema [Recovered/Resolved]
  - Vitreous haemorrhage [Unknown]
  - Angle closure glaucoma [Unknown]
  - Conjunctival haemorrhage [Unknown]
  - Corneal oedema [Unknown]
  - Haematoma [Unknown]
